FAERS Safety Report 18590970 (Version 2)
Quarter: 2020Q4

REPORT INFORMATION
  Report Type: Spontaneous
  Country: US (occurrence: US)
  Receive Date: 20201208
  Receipt Date: 20201211
  Transmission Date: 20210114
  Serious: No
  Sender: FDA-Public Use
  Company Number: NVSC2020US326447

PATIENT
  Age: 14 Year
  Sex: Female

DRUGS (1)
  1. MEKINIST [Suspect]
     Active Substance: TRAMETINIB DIMETHYL SULFOXIDE
     Indication: ROSAI-DORFMAN SYNDROME
     Dosage: 0.5 MG, QID
     Route: 065

REACTIONS (9)
  - Acne [Unknown]
  - Dry skin [Unknown]
  - Skin lesion [Unknown]
  - Pain [Unknown]
  - Lip haemorrhage [Unknown]
  - Tenderness [Unknown]
  - Epistaxis [Unknown]
  - Diarrhoea [Unknown]
  - Product use in unapproved indication [Unknown]
